FAERS Safety Report 9536604 (Version 1)
Quarter: 2013Q3

REPORT INFORMATION
  Report Type: Report from Study
  Country: US (occurrence: US)
  Receive Date: 20130919
  Receipt Date: 20130919
  Transmission Date: 20140515
  Serious: Yes (Other)
  Sender: FDA-Public Use
  Company Number: US-UCBSA-097664

PATIENT
  Age: 34 Year
  Sex: Female
  Weight: 80.8 kg

DRUGS (12)
  1. CIMZIA [Suspect]
     Indication: CROHN^S DISEASE
     Route: 058
     Dates: start: 20130525
  2. PRENATAL VITAMINS [Concomitant]
     Route: 048
     Dates: start: 20130728, end: 20130828
  3. MULTIVITAMINS [Concomitant]
     Route: 048
     Dates: start: 20130506, end: 20130708
  4. VITAMIN D [Concomitant]
     Indication: VITAMIN D DECREASED
     Route: 048
     Dates: start: 20130506, end: 20130828
  5. ADVIL [Concomitant]
     Indication: HEADACHE
     Route: 048
     Dates: start: 20130615, end: 20130615
  6. TYLENOL [Concomitant]
     Indication: HEADACHE
     Route: 048
     Dates: start: 20130728, end: 20130728
  7. VITAMIN B6 [Concomitant]
     Dosage: DOSE : 1 PILL
     Route: 048
     Dates: start: 20130813, end: 20130819
  8. UNISOM [Concomitant]
     Dosage: DOSE : 1 PILL
     Route: 048
     Dates: start: 20130813, end: 20130819
  9. BENADRYL [Concomitant]
     Indication: HYPERSENSITIVITY
     Route: 048
     Dates: start: 20130825, end: 20130825
  10. TYLENOL EXTRA STRENGH [Concomitant]
     Indication: HEADACHE
     Route: 048
     Dates: start: 20130801, end: 20130801
  11. TYLENOL EXTRA STRENGH [Concomitant]
     Indication: HEADACHE
     Route: 048
     Dates: start: 20130807, end: 20130807
  12. TYLENOL EXTRA STRENGH [Concomitant]
     Indication: HEADACHE
     Route: 048
     Dates: start: 20130810, end: 20130810

REACTIONS (2)
  - Abortion spontaneous [Unknown]
  - Exposure during pregnancy [Recovered/Resolved]
